FAERS Safety Report 6567818-0 (Version None)
Quarter: 2010Q1

REPORT INFORMATION
  Report Type: 
  Country: None (occurrence: None)
  Receive Date: 20100203
  Receipt Date: 20100126
  Transmission Date: 20100710
  Serious: Yes (Hospitalization, Other)
  Sender: FDA-Public Use
  Company Number: US-JNJFOC-20100111242

PATIENT
  Sex: Female
  Weight: 49.9 kg

DRUGS (2)
  1. ORTHO TRI-CYCLEN [Suspect]
     Indication: CONTRACEPTION
     Route: 048
  2. ORTHO TRI-CYCLEN [Suspect]
     Indication: ACNE
     Route: 048

REACTIONS (3)
  - COELIAC DISEASE [None]
  - GASTROINTESTINAL INFECTION [None]
  - NAUSEA [None]
